FAERS Safety Report 7427760-X (Version None)
Quarter: 2011Q2

REPORT INFORMATION
  Report Type: 
  Country: None (occurrence: None)
  Receive Date: 20110421
  Receipt Date: 20110411
  Transmission Date: 20111010
  Serious: Yes (Hospitalization)
  Sender: FDA-Public Use
  Company Number: FR-ELI_LILLY_AND_COMPANY-FR201104004648

PATIENT
  Age: 52 Year
  Sex: Female

DRUGS (3)
  1. FORLAX [Concomitant]
     Dosage: 1 DF, QD
     Route: 048
  2. TRIMEPRAZINE TARTRATE [Concomitant]
     Dosage: UNK
     Route: 048
  3. ZYPREXA [Suspect]
     Indication: PSYCHOTIC DISORDER
     Dosage: 20 MG, QD
     Route: 058

REACTIONS (2)
  - HYPONATRAEMIA [None]
  - PSYCHOTIC DISORDER [None]
